FAERS Safety Report 20235650 (Version 1)
Quarter: 2021Q4

REPORT INFORMATION
  Report Type: Report from Study
  Country: NL (occurrence: None)
  Receive Date: 20211228
  Receipt Date: 20211228
  Transmission Date: 20220304
  Serious: Yes (Hospitalization)
  Sender: FDA-Public Use
  Company Number: NL-ROCHE-2988223

PATIENT

DRUGS (1)
  1. ATEZOLIZUMAB [Suspect]
     Active Substance: ATEZOLIZUMAB
     Indication: Non-small cell lung cancer metastatic
     Route: 041

REACTIONS (1)
  - Skin infection [Unknown]
